FAERS Safety Report 20415797 (Version 1)
Quarter: 2022Q1

REPORT INFORMATION
  Report Type: Spontaneous
  Country: JP (occurrence: JP)
  Receive Date: 20220202
  Receipt Date: 20220202
  Transmission Date: 20220423
  Serious: Yes (Other)
  Sender: FDA-Public Use
  Company Number: JP-SAKK-00954010

PATIENT

DRUGS (1)
  1. DUPIXENT [Suspect]
     Active Substance: DUPILUMAB
     Indication: Dermatitis atopic
     Dosage: ONCE EVERY 6 WEEKS
     Route: 058

REACTIONS (2)
  - Pneumonia [Unknown]
  - Inappropriate schedule of product administration [Unknown]
